FAERS Safety Report 12470178 (Version 1)
Quarter: 2016Q2

REPORT INFORMATION
  Report Type: Spontaneous
  Country: FI (occurrence: FI)
  Receive Date: 20160616
  Receipt Date: 20160616
  Transmission Date: 20160815
  Serious: Yes (Death, Other)
  Sender: FDA-Public Use
  Company Number: FI-ALEMBIC PHARMACUETICALS LIMITED-2016SCAL000418

PATIENT

DRUGS (1)
  1. FLUOXETINE HYDROCHLORIDE. [Suspect]
     Active Substance: FLUOXETINE HYDROCHLORIDE
     Indication: PRODUCT USED FOR UNKNOWN INDICATION
     Dosage: UNK
     Route: 064

REACTIONS (5)
  - Small for dates baby [Unknown]
  - Death neonatal [Fatal]
  - Foetal exposure during pregnancy [Unknown]
  - Large for dates baby [None]
  - Umbilical cord abnormality [Unknown]
